FAERS Safety Report 5036566-0 (Version None)
Quarter: 2006Q2

REPORT INFORMATION
  Report Type: 
  Country: None (occurrence: None)
  Receive Date: 20060623
  Receipt Date: 20060614
  Transmission Date: 20061013
  Serious: Yes (Hospitalization, Other)
  Sender: FDA-Public Use
  Company Number: 2006033866

PATIENT
  Age: 63 Year
  Sex: Female
  Weight: 56 kg

DRUGS (7)
  1. LYRICA [Suspect]
     Indication: INTERVERTEBRAL DISC DISORDER
     Dosage: 300 MG (150 MG, 2 IN 1 D), ORAL
     Route: 048
     Dates: start: 20050520, end: 20060101
  2. LYRICA [Suspect]
     Indication: NECK PAIN
     Dosage: 300 MG (150 MG, 2 IN 1 D), ORAL
     Route: 048
     Dates: start: 20050520, end: 20060101
  3. OXYCODONE HCL [Suspect]
     Indication: INTERVERTEBRAL DISC DISORDER
     Dosage: 40 MG (40 MG, 1 IN 1D), ORAL
     Route: 048
     Dates: start: 20050520
  4. OXYCODONE HCL [Suspect]
     Indication: NECK PAIN
     Dosage: 40 MG (40 MG, 1 IN 1D), ORAL
     Route: 048
     Dates: start: 20050520
  5. PRAVASTATIN SODIUM [Concomitant]
  6. NORVASC [Concomitant]
  7. MIRTAZAPINE [Concomitant]

REACTIONS (17)
  - ACUTE PSYCHOSIS [None]
  - ALOPECIA [None]
  - ANHEDONIA [None]
  - ASTHENIA [None]
  - COGNITIVE DISORDER [None]
  - CORRECTIVE LENS USER [None]
  - DEPRESSION [None]
  - DISTURBANCE IN ATTENTION [None]
  - DRUG EFFECT DECREASED [None]
  - FEAR [None]
  - GINGIVAL DISORDER [None]
  - LOOSE TOOTH [None]
  - ONYCHOMADESIS [None]
  - PAIN [None]
  - RESTLESSNESS [None]
  - THINKING ABNORMAL [None]
  - TOOTH DISORDER [None]
